FAERS Safety Report 9378922 (Version 2)
Quarter: 2016Q3

REPORT INFORMATION
  Report Type: Spontaneous
  Country: US (occurrence: US)
  Receive Date: 20130702
  Receipt Date: 20160930
  Transmission Date: 20161109
  Serious: Yes (Other)
  Sender: FDA-Public Use
  Company Number: US-PFIZER INC-2013194348

PATIENT
  Age: 67 Year
  Sex: Female
  Weight: 81 kg

DRUGS (1)
  1. LYRICA [Suspect]
     Active Substance: PREGABALIN
     Indication: FIBROMYALGIA
     Dosage: UNK, 2X/DAY
     Route: 048

REACTIONS (4)
  - Heart rate increased [Unknown]
  - Neoplasm malignant [Unknown]
  - Blood pressure increased [Unknown]
  - Pain [Unknown]
